FAERS Safety Report 8557863-8 (Version None)
Quarter: 2012Q3

REPORT INFORMATION
  Report Type: 
  Country: None (occurrence: None)
  Receive Date: 20120801
  Receipt Date: 20120726
  Transmission Date: 20120928
  Serious: Yes (Death)
  Sender: FDA-Public Use
  Company Number: JP-GLAXOSMITHKLINE-B0811743A

PATIENT
  Sex: Female

DRUGS (5)
  1. SULFAMETHOXAZOLE AND TRIMETHOPRIM [Concomitant]
     Indication: INFECTION PROPHYLAXIS
     Dosage: 2IUAX PER DAY
     Route: 048
     Dates: start: 20120412
  2. FLUCONAZOLE (FLUCONAZON) [Concomitant]
     Indication: INFECTION PROPHYLAXIS
     Dosage: 200MG PER DAY
     Route: 048
     Dates: start: 20120412
  3. PREDNISOLONE [Concomitant]
     Indication: MULTIPLE MYELOMA
     Dosage: 40MG PER DAY
     Route: 048
     Dates: start: 20120511, end: 20120514
  4. ALKERAN [Suspect]
     Indication: MULTIPLE MYELOMA
     Dosage: 6MG PER DAY
     Route: 048
     Dates: start: 20120511, end: 20120514
  5. FAMOTIDINE [Concomitant]
     Dosage: 20MG PER DAY
     Route: 048
     Dates: start: 20120412

REACTIONS (22)
  - PLEURAL EFFUSION [None]
  - BONE MARROW FAILURE [None]
  - RESPIRATORY FAILURE [None]
  - PNEUMONIA [None]
  - RED CELL DISTRIBUTION WIDTH INCREASED [None]
  - BLOOD PRESSURE DECREASED [None]
  - WHITE BLOOD CELL COUNT DECREASED [None]
  - HAEMATOCRIT DECREASED [None]
  - MEAN CELL HAEMOGLOBIN INCREASED [None]
  - SEPTIC SHOCK [None]
  - MEAN CELL VOLUME INCREASED [None]
  - CHEST PAIN [None]
  - PLATELET COUNT DECREASED [None]
  - PANCYTOPENIA [None]
  - C-REACTIVE PROTEIN INCREASED [None]
  - DEPRESSED LEVEL OF CONSCIOUSNESS [None]
  - PYREXIA [None]
  - DISSEMINATED INTRAVASCULAR COAGULATION [None]
  - INFECTIOUS PLEURAL EFFUSION [None]
  - RED BLOOD CELL COUNT DECREASED [None]
  - HAEMOGLOBIN DECREASED [None]
  - MEAN CELL HAEMOGLOBIN CONCENTRATION INCREASED [None]
